FAERS Safety Report 4291012-X (Version None)
Quarter: 2004Q1

REPORT INFORMATION
  Report Type: 
  Country: None (occurrence: None)
  Receive Date: 20040211
  Receipt Date: 20031028
  Transmission Date: 20041129
  Serious: Yes (Other)
  Sender: FDA-Public Use
  Company Number: US-GLAXOSMITHKLINE-A0431909A

PATIENT
  Age: 40 Year
  Sex: Male

DRUGS (2)
  1. PAXIL [Suspect]
     Route: 048
  2. NONE [Concomitant]

REACTIONS (1)
  - THROMBOCYTOPENIA [None]
